FAERS Safety Report 22388862 (Version 1)
Quarter: 2023Q2

REPORT INFORMATION
  Report Type: Spontaneous
  Country: PK (occurrence: PK)
  Receive Date: 20230531
  Receipt Date: 20230531
  Transmission Date: 20230721
  Serious: Yes (Life-Threatening, Hospitalization)
  Sender: FDA-Public Use
  Company Number: PK-PFIZER INC-PV202300092315

PATIENT
  Age: 18 Year
  Sex: Male

DRUGS (7)
  1. METHYLPREDNISOLONE ACETATE [Suspect]
     Active Substance: METHYLPREDNISOLONE ACETATE
     Dosage: 1 G, DAILY
  2. PIPERACILLIN SODIUM\TAZOBACTAM SODIUM [Suspect]
     Active Substance: PIPERACILLIN SODIUM\TAZOBACTAM SODIUM
     Indication: Pyrexia
     Dosage: 4.5 MG, 4X/DAY
  3. UNSPECIFIED INGREDIENT [Suspect]
     Active Substance: UNSPECIFIED INGREDIENT
     Indication: Encephalitis
     Dosage: 60 MG, 2X/DAY
     Route: 058
  4. LEVETIRACETAM [Suspect]
     Active Substance: LEVETIRACETAM
     Indication: Encephalitis
     Dosage: 1.5 G, 3X/DAY (TDS)
  5. ACYCLOVIR [Suspect]
     Active Substance: ACYCLOVIR
     Indication: Pyrexia
     Dosage: 750 MG, 3X/DAY (TDS)
     Route: 042
  6. LACOSAMIDE [Suspect]
     Active Substance: LACOSAMIDE
     Dosage: 100 MG, 2X/DAY
  7. CLONAZEPAM [Suspect]
     Active Substance: CLONAZEPAM
     Dosage: 1 MG, 2X/DAY (BD)

REACTIONS (1)
  - Drug ineffective [Recovering/Resolving]
